FAERS Safety Report 20907032 (Version 1)
Quarter: 2022Q2

REPORT INFORMATION
  Report Type: Spontaneous
  Country: US (occurrence: None)
  Receive Date: 20220602
  Receipt Date: 20220602
  Transmission Date: 20220721
  Serious: No
  Sender: FDA-Public Use
  Company Number: None

PATIENT
  Age: 51 Year
  Sex: Male
  Weight: 66.22 kg

DRUGS (10)
  1. CAPECITABINE [Suspect]
     Active Substance: CAPECITABINE
     Indication: Colon cancer
     Dosage: FREQUENCY : TWICE A DAY;?
     Route: 048
     Dates: start: 20220414
  2. COENZYME Q-10 [Concomitant]
  3. DANDELION [Concomitant]
     Active Substance: TARAXACUM OFFICINALE POLLEN
  4. GARLIC OIL [Concomitant]
     Active Substance: GARLIC OIL
  5. MAGNESIUM [Concomitant]
     Active Substance: MAGNESIUM
  6. THC AND CBD [Concomitant]
  7. TURKEY TAIL [Concomitant]
  8. HERBALS\TURMERIC [Concomitant]
     Active Substance: HERBALS\TURMERIC
  9. VITAMIN C [Concomitant]
     Active Substance: ASCORBIC ACID
  10. VITAMIN D3 [Concomitant]
     Active Substance: CHOLECALCIFEROL

REACTIONS (1)
  - Condition aggravated [None]
